FAERS Safety Report 11314239 (Version 1)
Quarter: 2015Q3

REPORT INFORMATION
  Report Type: Report from Study
  Country: None (occurrence: US)
  Receive Date: 20150727
  Receipt Date: 20150727
  Transmission Date: 20151125
  Serious: No
  Sender: FDA-Public Use
  Company Number: US-GALDERMA-US15001993

PATIENT
  Age: 24 Year
  Sex: Female
  Weight: 56.75 kg

DRUGS (2)
  1. PRENATAL VITAMIN [Concomitant]
     Active Substance: VITAMINS
     Route: 048
     Dates: start: 20150405
  2. DIFFERIN [Suspect]
     Active Substance: ADAPALENE
     Dosage: 0.1%
     Dates: start: 20150224, end: 20150404

REACTIONS (1)
  - Exposure during pregnancy [Not Recovered/Not Resolved]

NARRATIVE: CASE EVENT DATE: 20150405
